FAERS Safety Report 21389810 (Version 1)
Quarter: 2022Q3

REPORT INFORMATION
  Report Type: Spontaneous
  Country: DE (occurrence: DE)
  Receive Date: 20220929
  Receipt Date: 20220929
  Transmission Date: 20221027
  Serious: Yes (Hospitalization)
  Sender: FDA-Public Use
  Company Number: None

PATIENT
  Age: 38 Year
  Sex: Male
  Weight: 100 kg

DRUGS (2)
  1. ENBREL [Suspect]
     Active Substance: ETANERCEPT
     Indication: Product used for unknown indication
     Dosage: 50 MG, ON SUNDAYS
     Route: 058
  2. Thyronajod 50 henning [Concomitant]
     Dosage: 0.5-0-0-0
     Route: 048

REACTIONS (5)
  - Gait disturbance [Unknown]
  - Urinary incontinence [Unknown]
  - Functional gastrointestinal disorder [Unknown]
  - Paraesthesia [Unknown]
  - Headache [Unknown]
